FAERS Safety Report 8512309-0 (Version None)
Quarter: 2012Q3

REPORT INFORMATION
  Report Type: 
  Country: None (occurrence: None)
  Receive Date: 20120716
  Receipt Date: 20120705
  Transmission Date: 20120928
  Serious: No
  Sender: FDA-Public Use
  Company Number: NL-ACTELION-A-CH2012-68206

PATIENT

DRUGS (1)
  1. TRACLEER [Suspect]
     Indication: MATERNAL EXPOSURE DURING PREGNANCY
     Dosage: UNK
     Route: 064
     Dates: end: 20111026

REACTIONS (3)
  - MATERNAL EXPOSURE DURING PREGNANCY [None]
  - DELIVERY [None]
  - NORMAL NEWBORN [None]
